FAERS Safety Report 13156630 (Version 1)
Quarter: 2017Q1

REPORT INFORMATION
  Report Type: Spontaneous
  Country: US (occurrence: US)
  Receive Date: 20170126
  Receipt Date: 20170126
  Transmission Date: 20170428
  Serious: No
  Sender: FDA-Public Use
  Company Number: US-TEIKOKU PHARMA USA-TPU2017-00055

PATIENT
  Sex: Male
  Weight: 70.37 kg

DRUGS (9)
  1. HYDROCODONE [Concomitant]
     Active Substance: HYDROCODONE
     Dosage: 6 TABLETS
  2. LIDOCAINE PATCH [Suspect]
     Active Substance: LIDOCAINE
     Indication: NECK PAIN
  3. LIDOCAINE PATCH [Suspect]
     Active Substance: LIDOCAINE
     Indication: MUSCULOSKELETAL PAIN
  4. LIDOCAINE PATCH [Suspect]
     Active Substance: LIDOCAINE
     Indication: BACK PAIN
     Dosage: CUT IN HALF, EACH HALF APPLIED TO BOTTOMS OF FEET OR APPLIED TO RIGHT SHOULDER, BACK OR NECK AS NEED
     Route: 061
  5. A MEDICATION [Suspect]
     Active Substance: UNSPECIFIED INGREDIENT
  6. SOMA [Concomitant]
     Active Substance: CARISOPRODOL
     Dosage: 3 TABLETS
  7. IBUPROFEN. [Concomitant]
     Active Substance: IBUPROFEN
  8. HYDROCODONE [Concomitant]
     Active Substance: HYDROCODONE
     Dosage: 4 TABLETS
  9. LIDOCAINE PATCH [Suspect]
     Active Substance: LIDOCAINE
     Indication: NEURALGIA

REACTIONS (3)
  - Swollen tongue [Unknown]
  - Aphasia [Unknown]
  - Pain [Unknown]
